FAERS Safety Report 5877011-2 (Version None)
Quarter: 2008Q3

REPORT INFORMATION
  Report Type: 
  Country: None (occurrence: None)
  Receive Date: 20080910
  Receipt Date: 20080902
  Transmission Date: 20090109
  Serious: Yes (Other)
  Sender: FDA-Public Use
  Company Number: PHHY2008JP18773

PATIENT
  Sex: Male

DRUGS (2)
  1. MIKELAN (NVO) [Suspect]
     Indication: GLAUCOMA
     Dosage: 1 GTT OU QD
     Dates: start: 20080716, end: 20080719
  2. XALATAN [Concomitant]
     Indication: GLAUCOMA
     Dosage: UNK
     Dates: start: 20060530

REACTIONS (1)
  - VITH NERVE PARALYSIS [None]
